FAERS Safety Report 5946804-5 (Version None)
Quarter: 2008Q4

REPORT INFORMATION
  Report Type: 
  Country: None (occurrence: None)
  Receive Date: 20081110
  Receipt Date: 20081104
  Transmission Date: 20090506
  Serious: Yes (Other)
  Sender: FDA-Public Use
  Company Number: US-ASTRAZENECA-2008UW24676

PATIENT
  Age: 73 Year
  Sex: Male
  Weight: 94.8 kg

DRUGS (6)
  1. CRESTOR [Suspect]
     Indication: BLOOD CHOLESTEROL INCREASED
     Route: 048
  2. CRESTOR [Suspect]
     Route: 048
  3. TOPROL-XL [Concomitant]
  4. VASOTEC [Concomitant]
  5. ALTOSE METFORMIN [Concomitant]
     Dosage: 15/850
  6. ASPIRIN [Concomitant]

REACTIONS (2)
  - CARDIAC OPERATION [None]
  - CONSTIPATION [None]
